FAERS Safety Report 19217174 (Version 2)
Quarter: 2021Q2

REPORT INFORMATION
  Report Type: Report from Study
  Country: US (occurrence: US)
  Receive Date: 20210505
  Receipt Date: 20210628
  Transmission Date: 20210717
  Serious: Yes (Hospitalization, Other)
  Sender: FDA-Public Use
  Company Number: US-UCBSA-2021016590

PATIENT
  Age: 39 Year
  Sex: Male
  Weight: 120.2 kg

DRUGS (2)
  1. LACOSAMIDE. [Suspect]
     Active Substance: LACOSAMIDE
     Indication: SEIZURE
     Dosage: 200MG 0.5 TABLET
  2. LACOSAMIDE. [Suspect]
     Active Substance: LACOSAMIDE
     Dosage: 200 MG 1.5 TABLET TWICE DAILY
     Dates: end: 20210414

REACTIONS (9)
  - Headache [Not Recovered/Not Resolved]
  - Intentional product misuse [Unknown]
  - Seizure [Unknown]
  - Postictal state [Unknown]
  - Overdose [Unknown]
  - Wrong technique in product usage process [Unknown]
  - Dizziness [Not Recovered/Not Resolved]
  - Product availability issue [Unknown]
  - Therapy interrupted [Unknown]

NARRATIVE: CASE EVENT DATE: 20210407
